FAERS Safety Report 12034819 (Version 1)
Quarter: 2016Q1

REPORT INFORMATION
  Report Type: Report from Study
  Country: US (occurrence: US)
  Receive Date: 20160207
  Receipt Date: 20160207
  Transmission Date: 20160526
  Serious: No
  Sender: FDA-Public Use
  Company Number: US-ABBVIE-15K-163-1520665-00

PATIENT
  Age: 57 Year
  Sex: Female

DRUGS (1)
  1. HUMIRA [Suspect]
     Active Substance: ADALIMUMAB
     Indication: COLITIS ULCERATIVE
     Dosage: TWO 40 MG; DAY-1
     Route: 058
     Dates: start: 20151127, end: 20151127

REACTIONS (10)
  - Diarrhoea haemorrhagic [Unknown]
  - Anxiety [Unknown]
  - Depressed mood [Unknown]
  - Abdominal pain [Unknown]
  - Decreased appetite [Unknown]
  - Incorrect dose administered [Unknown]
  - Insomnia [Unknown]
  - Constipation [Unknown]
  - Headache [Unknown]
  - Nausea [Unknown]

NARRATIVE: CASE EVENT DATE: 2015
